FAERS Safety Report 9690989 (Version 1)
Quarter: 2013Q4

REPORT INFORMATION
  Report Type: Spontaneous
  Country: US (occurrence: US)
  Receive Date: 20131115
  Receipt Date: 20131115
  Transmission Date: 20140711
  Serious: No
  Sender: FDA-Public Use
  Company Number: US-B.I. PHARMACEUTICALS,INC./RIDGEFIELD-2013-BI-35826BP

PATIENT
  Sex: 0

DRUGS (1)
  1. TRADJENTA [Suspect]

REACTIONS (1)
  - Fluid retention [Unknown]
